FAERS Safety Report 9025535 (Version 6)
Quarter: 2013Q3

REPORT INFORMATION
  Report Type: Spontaneous
  Country: US (occurrence: US)
  Receive Date: 20130122
  Receipt Date: 20130808
  Transmission Date: 20140515
  Serious: Yes (Hospitalization, Other)
  Sender: FDA-Public Use
  Company Number: US-009507513-1301USA010155

PATIENT
  Sex: Female
  Weight: 96.42 kg

DRUGS (8)
  1. FOSAMAX [Suspect]
     Indication: OSTEOPOROSIS
     Dosage: 70 MG, QW
     Route: 048
     Dates: start: 20021101, end: 2011
  2. FOSAMAX [Suspect]
     Indication: OSTEOPENIA
  3. ALENDRONATE SODIUM [Suspect]
     Dosage: 70 DF, UNK
  4. DIOVAN HCT [Concomitant]
     Indication: HYPERTENSION
     Dosage: 160-12.5 QD
  5. VITAMIN D (UNSPECIFIED) [Concomitant]
     Indication: OSTEOPOROSIS
     Dosage: 1.25 MG, UNK
     Dates: start: 20071203
  6. HYDROCHLOROTHIAZIDE [Concomitant]
     Indication: HYPERTENSION
  7. VERAPAMIL [Concomitant]
     Indication: HYPERTENSION
  8. BONIVA [Concomitant]
     Indication: OSTEOPOROSIS

REACTIONS (32)
  - Femur fracture [Unknown]
  - Femur fracture [Unknown]
  - Internal fixation of fracture [Unknown]
  - Adverse event [Unknown]
  - Parathyroidectomy [Unknown]
  - Knee arthroplasty [Unknown]
  - Low turnover osteopathy [Unknown]
  - Spinal osteoarthritis [Unknown]
  - Cough [Unknown]
  - Osteoarthritis [Unknown]
  - Knee deformity [Unknown]
  - Ligament laxity [Unknown]
  - Osteoporosis [Unknown]
  - Arthritis [Unknown]
  - Hypercalcaemia [Unknown]
  - Hyperlipidaemia [Unknown]
  - Hyperparathyroidism [Unknown]
  - Biopsy breast [Unknown]
  - Cataract operation [Unknown]
  - Limb operation [Unknown]
  - Forearm fracture [Unknown]
  - Goitre [Unknown]
  - Blood parathyroid hormone increased [Unknown]
  - Kyphoscoliosis [Unknown]
  - Lacrimation increased [Unknown]
  - Vitamin D deficiency [Unknown]
  - Pain [Unknown]
  - Infection [Unknown]
  - Eye infection [Unknown]
  - Eye pain [Unknown]
  - Arthritis [Unknown]
  - Thyroid disorder [Unknown]
